FAERS Safety Report 5420520-0 (Version None)
Quarter: 2007Q3

REPORT INFORMATION
  Report Type: 
  Country: None (occurrence: None)
  Receive Date: 20070821
  Receipt Date: 20061010
  Transmission Date: 20080115
  Serious: No
  Sender: FDA-Public Use
  Company Number: US-KINGPHARMUSA00001-K200601279

PATIENT

DRUGS (3)
  1. CYTOMEL [Suspect]
     Indication: HYPOTHYROIDISM
     Dosage: 5 MCG, QD
     Route: 048
     Dates: start: 20061008
  2. DIFLUCAN [Concomitant]
     Indication: FUNGAL INFECTION
  3. CANDAZOL [Concomitant]
     Indication: FUNGAL INFECTION
     Dosage: UNK, UNK

REACTIONS (2)
  - FLUSHING [None]
  - PARAESTHESIA [None]
